FAERS Safety Report 11255116 (Version 3)
Quarter: 2016Q2

REPORT INFORMATION
  Report Type: Spontaneous
  Country: US (occurrence: US)
  Receive Date: 20150709
  Receipt Date: 20160401
  Transmission Date: 20160815
  Serious: Yes (Hospitalization)
  Sender: FDA-Public Use
  Company Number: US-JNJFOC-20150704745

PATIENT
  Age: 73 Year
  Sex: Female

DRUGS (3)
  1. XARELTO [Suspect]
     Active Substance: RIVAROXABAN
     Indication: THROMBOSIS PROPHYLAXIS
     Dosage: RIVAROXABAN WAS GIVEN IN APPROXIAMTELY 10-20MG DOSE.
     Route: 048
     Dates: start: 20130101, end: 20150217
  2. XARELTO [Suspect]
     Active Substance: RIVAROXABAN
     Indication: CEREBROVASCULAR ACCIDENT PROPHYLAXIS
     Dosage: RIVAROXABAN WAS GIVEN IN APPROXIAMTELY 10-20MG DOSE.
     Route: 048
     Dates: start: 20130101, end: 20150217
  3. XARELTO [Suspect]
     Active Substance: RIVAROXABAN
     Indication: ATRIAL FIBRILLATION
     Dosage: RIVAROXABAN WAS GIVEN IN APPROXIAMTELY 10-20MG DOSE.
     Route: 048
     Dates: start: 20130101, end: 20150217

REACTIONS (2)
  - Cerebral haemorrhage [Unknown]
  - Internal haemorrhage [Unknown]

NARRATIVE: CASE EVENT DATE: 20150124
